FAERS Safety Report 15096428 (Version 5)
Quarter: 2019Q1

REPORT INFORMATION
  Report Type: Spontaneous
  Country: US (occurrence: US)
  Receive Date: 20180702
  Receipt Date: 20190116
  Transmission Date: 20190417
  Serious: No
  Sender: FDA-Public Use
  Company Number: US-PFIZER INC-2018263775

PATIENT
  Age: 10 Year
  Sex: Female
  Weight: 28 kg

DRUGS (6)
  1. GENOTROPIN [Suspect]
     Active Substance: SOMATROPIN
     Indication: GROWTH FAILURE
     Dosage: 1 MG, 1X/DAY
     Route: 030
  2. LEVOTHYROXINE. [Concomitant]
     Active Substance: LEVOTHYROXINE
     Indication: HYPOTHYROIDISM
     Dosage: 25 UG, 1X/DAY
     Route: 048
     Dates: start: 2017
  3. GENOTROPIN [Suspect]
     Active Substance: SOMATROPIN
     Indication: BLOOD GROWTH HORMONE
     Dosage: 8 IU, 1X/DAY (8 UNITS ON AN INSULIN SYRINGE ONCE A DAY BY INJECTION)
  4. LEVOTHYROXINE. [Concomitant]
     Active Substance: LEVOTHYROXINE
     Indication: THYROID DISORDER
  5. LIOTHYRONINE [Concomitant]
     Active Substance: LIOTHYRONINE
     Indication: AUTOIMMUNE THYROIDITIS
     Dosage: 10 UG, 2X/DAY
     Route: 048
  6. INSULIN [Concomitant]
     Active Substance: INSULIN NOS
     Dosage: UNK

REACTIONS (9)
  - Device issue [Unknown]
  - Wrong technique in device usage process [Unknown]
  - Product prescribing error [Unknown]
  - Incorrect route of product administration [Unknown]
  - Device leakage [Unknown]
  - Incorrect dose administered by device [Unknown]
  - Injection site pain [Not Recovered/Not Resolved]
  - Injection site bruising [Not Recovered/Not Resolved]
  - Injection site erythema [Not Recovered/Not Resolved]

NARRATIVE: CASE EVENT DATE: 2017
